FAERS Safety Report 9495082 (Version 2)
Quarter: 2013Q4

REPORT INFORMATION
  Report Type: Spontaneous
  Country: US (occurrence: US)
  Receive Date: 20130903
  Receipt Date: 20131206
  Transmission Date: 20140711
  Serious: Yes (Hospitalization, Congenital Anomaly, Other)
  Sender: FDA-Public Use
  Company Number: US-PFIZER INC-2013251972

PATIENT
  Sex: Male

DRUGS (2)
  1. ZOLOFT [Suspect]
     Indication: DEPRESSION
     Dosage: UNK
     Route: 064
     Dates: start: 1999, end: 2010
  2. PRENATAL VITAMINS [Concomitant]
     Dosage: UNK
     Route: 064

REACTIONS (6)
  - Maternal exposure during pregnancy [Unknown]
  - Hypoglycaemia [Unknown]
  - Hypospadias [Unknown]
  - Polydactyly [Unknown]
  - Premature baby [Unknown]
  - Attention deficit/hyperactivity disorder [Unknown]
